FAERS Safety Report 4808264-7 (Version None)
Quarter: 2005Q4

REPORT INFORMATION
  Report Type: 
  Country: None (occurrence: None)
  Receive Date: 20051021
  Receipt Date: 20051014
  Transmission Date: 20060501
  Serious: No
  Sender: FDA-Public Use
  Company Number: FR_020701250

PATIENT
  Age: 35 Year
  Sex: Male

DRUGS (2)
  1. ZYPREXA [Suspect]
     Indication: MAJOR DEPRESSION
     Dosage: 10 MG/ DAY
     Dates: start: 20020301
  2. EFFEXOR [Concomitant]

REACTIONS (4)
  - BASOPHILIA [None]
  - INFECTION [None]
  - LEUKOCYTOSIS [None]
  - NEUTROPHILIA [None]
